FAERS Safety Report 13010037 (Version 3)
Quarter: 2017Q1

REPORT INFORMATION
  Report Type: Report from Study
  Country: US (occurrence: US)
  Receive Date: 20161208
  Receipt Date: 20170125
  Transmission Date: 20170428
  Serious: Yes (Other)
  Sender: FDA-Public Use
  Company Number: US-MALLINCKRODT-T201606252

PATIENT
  Age: 16 Year
  Sex: Female
  Weight: 108 kg

DRUGS (7)
  1. CELLCEPT [Concomitant]
     Active Substance: MYCOPHENOLATE MOFETIL\MYCOPHENOLATE MOFETIL HYDROCHLORIDE
     Indication: PRODUCT USED FOR UNKNOWN INDICATION
     Dosage: UNK
  2. LOSARTAN. [Concomitant]
     Active Substance: LOSARTAN
     Indication: PRODUCT USED FOR UNKNOWN INDICATION
     Dosage: UNKNOWN
  3. PREDNISONE. [Suspect]
     Active Substance: PREDNISONE
     Indication: PRODUCT USED FOR UNKNOWN INDICATION
     Dosage: UNKNOWN
     Route: 065
  4. REPOSITORY CORTICOTROPIN INJECTION [Suspect]
     Active Substance: CORTICOTROPIN
     Indication: NEPHROTIC SYNDROME
     Dosage: 1 ML / 80 UNITS/ML, EVERY MONDAY AND THURSDAY FOR 5 MONTHS
     Route: 058
     Dates: start: 20161116, end: 201611
  5. REPOSITORY CORTICOTROPIN INJECTION [Suspect]
     Active Substance: CORTICOTROPIN
     Indication: LUPUS NEPHRITIS
     Dosage: 1 ML / 80 UNITS/ML, 2 TIMESS PER WEEK, EVERY MONDAY AND THURSDAY FOR 5 MONTHS
     Route: 030
     Dates: start: 20161121
  6. KEPPRA [Concomitant]
     Active Substance: LEVETIRACETAM
     Indication: PRODUCT USED FOR UNKNOWN INDICATION
     Dosage: UNKNOWN
  7. METFORMIN [Concomitant]
     Active Substance: METFORMIN HYDROCHLORIDE
     Indication: GLYCOSYLATED HAEMOGLOBIN INCREASED
     Dosage: UNKNOWN
     Dates: start: 20161116

REACTIONS (10)
  - Body temperature increased [Unknown]
  - Eye swelling [Not Recovered/Not Resolved]
  - Blood glucose decreased [Unknown]
  - Chest pain [Unknown]
  - Glycosylated haemoglobin increased [Not Recovered/Not Resolved]
  - Restlessness [Unknown]
  - Incorrect route of drug administration [Unknown]
  - Eye pain [Not Recovered/Not Resolved]
  - Decreased appetite [Not Recovered/Not Resolved]
  - Diabetes mellitus [Unknown]

NARRATIVE: CASE EVENT DATE: 2016
